FAERS Safety Report 7942059-0 (Version None)
Quarter: 2011Q4

REPORT INFORMATION
  Report Type: 
  Country: None (occurrence: None)
  Receive Date: 20111128
  Receipt Date: 20111128
  Transmission Date: 20120403
  Serious: Yes (Other)
  Sender: FDA-Public Use
  Company Number: None

PATIENT
  Age: 27 Year
  Sex: Female
  Weight: 68.038 kg

DRUGS (2)
  1. VENLAFAXINE [Suspect]
     Indication: ANXIETY
     Dosage: 1 CAPSULE
     Route: 048
     Dates: start: 20111110, end: 20111115
  2. VENLAFAXINE [Concomitant]
     Indication: TRICHOTILLOMANIA
     Dates: start: 20111118, end: 20111119

REACTIONS (12)
  - DIZZINESS [None]
  - VERTIGO [None]
  - VISION BLURRED [None]
  - NAUSEA [None]
  - VOMITING [None]
  - RETCHING [None]
  - TREMOR [None]
  - CHILLS [None]
  - FEELING COLD [None]
  - CHEST PAIN [None]
  - HALLUCINATION [None]
  - HYPERHIDROSIS [None]
